FAERS Safety Report 5281075-7 (Version None)
Quarter: 2007Q1

REPORT INFORMATION
  Report Type: 
  Country: None (occurrence: None)
  Receive Date: 20070323
  Receipt Date: 20070313
  Transmission Date: 20070707
  Serious: Yes (Life-Threatening, Hospitalization)
  Sender: FDA-Public Use
  Company Number: 154059ISR

PATIENT
  Age: 65 Year
  Sex: Female

DRUGS (4)
  1. FLUOROURACIL [Suspect]
     Indication: METASTATIC GASTRIC CANCER
     Dosage: ?? (200 MG/M2) INTRAVENOUS (NOT OTHERWISE SPECIFIED)
     Route: 042
     Dates: start: 20070227
  2. FOLINIC ACID [Suspect]
     Indication: METASTATIC GASTRIC CANCER
     Dosage: ?? (1500 MG/M2) INTRAVENOUS (NOT OTHERWISE SPECIFIED)
     Route: 042
     Dates: start: 20070227
  3. IRINOTECAN HCL [Suspect]
     Indication: METASTATIC GASTRIC CANCER
     Dosage: (80 MG/M2) INTRAVENOUS (NOT OTHERWISE SPECIFIED)
     Route: 042
     Dates: start: 20070227
  4. CETUXIMAB [Suspect]
     Indication: METASTATIC GASTRIC CANCER
     Dosage: (400 MG/M2) INTRAVENOUS (NOT OTHERWISE SPECIFIED)
     Route: 042
     Dates: start: 20070227

REACTIONS (3)
  - GENERAL PHYSICAL HEALTH DETERIORATION [None]
  - HYPOCALCAEMIA [None]
  - TETANY [None]
